FAERS Safety Report 18575073 (Version 1)
Quarter: 2020Q4

REPORT INFORMATION
  Report Type: Spontaneous
  Country: US (occurrence: US)
  Receive Date: 20201202
  Receipt Date: 20201202
  Transmission Date: 20210114
  Serious: Yes (Hospitalization)
  Sender: FDA-Public Use
  Company Number: None

PATIENT
  Age: 73 Year
  Sex: Male
  Weight: 74 kg

DRUGS (2)
  1. ENOXAPARIN (ENOXAPARIN 60MG/0.6ML) [Suspect]
     Active Substance: ENOXAPARIN SODIUM
     Route: 058
     Dates: start: 20201020, end: 20201023
  2. HEPARIN/SODIUM CHLORIDE (HEPARIN NA 100UNT/ML/NACL 0.45% INJ) [Suspect]
     Active Substance: HEPARIN SODIUM
     Dosage: ?          OTHER STRENGTH:100UNT/ML, 0.45%;?
     Route: 042
     Dates: start: 20201027, end: 20201029

REACTIONS (6)
  - Haemoglobin decreased [None]
  - Shock [None]
  - Gastric haemorrhage [None]
  - Haemodynamic instability [None]
  - Pneumothorax [None]
  - General physical health deterioration [None]

NARRATIVE: CASE EVENT DATE: 20201029
